FAERS Safety Report 16008944 (Version 1)
Quarter: 2019Q1

REPORT INFORMATION
  Report Type: Report from Study
  Country: US (occurrence: US)
  Receive Date: 20190226
  Receipt Date: 20190226
  Transmission Date: 20190418
  Serious: Yes (Other)
  Sender: FDA-Public Use
  Company Number: US-BAUSCH-BL-2019-005668

PATIENT
  Sex: Female

DRUGS (2)
  1. TIMOPTIC [Suspect]
     Active Substance: TIMOLOL MALEATE
     Indication: INTRAOCULAR PRESSURE INCREASED
     Dosage: IN THE RIGHT EYE
     Route: 047
     Dates: start: 201902
  2. PREDNISOLONE ACETATE. [Concomitant]
     Active Substance: PREDNISOLONE ACETATE
     Indication: POST PROCEDURAL SWELLING

REACTIONS (3)
  - Eye operation [Recovered/Resolved]
  - Skin abrasion [Unknown]
  - Erythema [Unknown]

NARRATIVE: CASE EVENT DATE: 2019
